FAERS Safety Report 12612835 (Version 1)
Quarter: 2016Q3

REPORT INFORMATION
  Report Type: Spontaneous
  Country: ES (occurrence: ES)
  Receive Date: 20160802
  Receipt Date: 20160802
  Transmission Date: 20161109
  Serious: Yes (Hospitalization, Other)
  Sender: FDA-Public Use
  Company Number: ES-ZYDUS-011680

PATIENT
  Age: 48 Year
  Sex: Male

DRUGS (1)
  1. CARVEDILOL/CARVEDILOL HYDROCHLODRIDE [Suspect]
     Active Substance: CARVEDILOL
     Indication: PORTAL HYPERTENSIVE GASTROPATHY
     Route: 048

REACTIONS (7)
  - Bacterascites [Recovering/Resolving]
  - Enterococcus test positive [None]
  - Hypotension [Recovered/Resolved]
  - Acute on chronic liver failure [Unknown]
  - Cellulitis [None]
  - Acute kidney injury [Recovered/Resolved]
  - Condition aggravated [Recovering/Resolving]
